FAERS Safety Report 8969813 (Version 1)
Quarter: 2012Q4

REPORT INFORMATION
  Report Type: 
  Country: FR (occurrence: FR)
  Receive Date: 20121217
  Receipt Date: 20121217
  Transmission Date: 20130627
  Serious: Yes (Death, Hospitalization)
  Sender: FDA-Public Use
  Company Number: FR-B.I. PHARMACEUTICALS,INC./RIDGEFIELD-2012-FF-01950FF

PATIENT
  Age: 93 Year
  Sex: Female

DRUGS (6)
  1. PRADAXA [Suspect]
     Indication: ATRIAL FIBRILLATION
     Dosage: 220 mg
     Route: 048
     Dates: start: 201206, end: 20121020
  2. APROVEL [Suspect]
     Indication: ATRIAL FIBRILLATION
     Dosage: 300 mg
     Route: 048
     Dates: start: 201208, end: 201210
  3. LASILIX [Concomitant]
     Route: 048
  4. DIFFU K [Concomitant]
  5. CORDARONE [Concomitant]
  6. CARDENSIEL [Concomitant]
     Route: 048

REACTIONS (3)
  - Cardiac failure [Fatal]
  - Diarrhoea [Fatal]
  - Dehydration [Fatal]
